FAERS Safety Report 5741009-5 (Version None)
Quarter: 2008Q2

REPORT INFORMATION
  Report Type: 
  Country: None (occurrence: None)
  Receive Date: 20080516
  Receipt Date: 20080505
  Transmission Date: 20081010
  Serious: Yes (Hospitalization)
  Sender: FDA-Public Use
  Company Number: FR-PFIZER INC-2008039180

PATIENT
  Age: 24 Year
  Sex: Female

DRUGS (2)
  1. SALAZOPYRINE [Suspect]
     Indication: ARTHRITIS
     Route: 048
     Dates: start: 20070526, end: 20071207
  2. BREXIN [Suspect]
     Indication: ARTHRITIS
     Route: 048
     Dates: start: 20070301, end: 20071207

REACTIONS (2)
  - DEAFNESS NEUROSENSORY [None]
  - NEURITIS [None]
